FAERS Safety Report 4515369-7 (Version None)
Quarter: 2004Q4

REPORT INFORMATION
  Report Type: 
  Country: None (occurrence: None)
  Receive Date: 20041126
  Receipt Date: 20041115
  Transmission Date: 20050328
  Serious: Yes (Other)
  Sender: FDA-Public Use
  Company Number: 2004093169

PATIENT
  Age: 55 Year
  Sex: Male
  Weight: 83.9154 kg

DRUGS (11)
  1. GEODON [Suspect]
     Indication: BIPOLAR DISORDER
     Dosage: 80 MG (40 MG, 2 IN 1 D), ORAL
     Route: 048
     Dates: start: 20040101
  2. LITHIUM (LITHIUM) [Suspect]
     Indication: BIPOLAR DISORDER
     Dosage: ORAL
     Route: 048
  3. DIAZEPAM [Concomitant]
  4. OXCARBAZEPINE (OXCARBAZEPINE) [Concomitant]
  5. METFORMIN HCL [Concomitant]
  6. GLIPIZIDE [Concomitant]
  7. PANTOPRAZOLE (PANTOPRAZOLE) [Concomitant]
  8. TRIHEXYPHENIDYL HCL [Concomitant]
  9. PROCYCLIDINE HYDROCHLORIDE (PROCYCLIDINE HYDROCHLORIDE) [Concomitant]
  10. NOVOLIN 20/80 (INSULIN HUMAN, INSULIN ISOPHANE, HUMAN BIOSYNTHETIC) [Concomitant]
  11. ASPIRIN [Concomitant]

REACTIONS (10)
  - BLOOD SODIUM DECREASED [None]
  - BRUXISM [None]
  - FATIGUE [None]
  - LOSS OF CONSCIOUSNESS [None]
  - ROAD TRAFFIC ACCIDENT [None]
  - SOMNOLENCE [None]
  - SPEECH DISORDER [None]
  - TONGUE BITING [None]
  - TONGUE DISORDER [None]
  - TREMOR [None]
